FAERS Safety Report 18232151 (Version 1)
Quarter: 2020Q3

REPORT INFORMATION
  Report Type: Spontaneous
  Country: US (occurrence: US)
  Receive Date: 20200903
  Receipt Date: 20200903
  Transmission Date: 20201103
  Serious: Yes (Death)
  Sender: FDA-Public Use
  Company Number: None

PATIENT
  Age: 77 Year
  Sex: Male
  Weight: 98.88 kg

DRUGS (13)
  1. DAURISMO [Suspect]
     Active Substance: GLASDEGIB
     Indication: ACUTE MYELOID LEUKAEMIA
     Route: 048
     Dates: start: 20200714, end: 20200828
  2. CATHFLO ACTIVASE 2MG [Concomitant]
  3. CEFEPIME ZGM [Concomitant]
  4. LEVOFLOXACIN 500MG [Concomitant]
     Active Substance: LEVOFLOXACIN
  5. SPIRONOLACTONE 25MG [Concomitant]
     Active Substance: SPIRONOLACTONE
  6. ACYCLOVIR 400MG [Concomitant]
     Active Substance: ACYCLOVIR
  7. FUROSEMIDE 20MG [Concomitant]
     Active Substance: FUROSEMIDE
  8. ONDANSETRON 8MG [Concomitant]
     Active Substance: ONDANSETRON
  9. TYLENOL [Concomitant]
     Active Substance: ACETAMINOPHEN
  10. BETIMOL [Concomitant]
     Active Substance: TIMOLOL
  11. SODIUM CHLORIDE 0.9% [Concomitant]
     Active Substance: SODIUM CHLORIDE
  12. FLUCONAZOLE ZUUMG [Concomitant]
  13. CYANOCOBALAMIN 1000MCG [Concomitant]

REACTIONS (1)
  - Death [None]

NARRATIVE: CASE EVENT DATE: 20200828
